FAERS Safety Report 23299953 (Version 1)
Quarter: 2023Q4

REPORT INFORMATION
  Report Type: Spontaneous
  Country: US (occurrence: None)
  Receive Date: 20231215
  Receipt Date: 20231215
  Transmission Date: 20240109
  Serious: Yes (Hospitalization, Other)
  Sender: FDA-Public Use
  Company Number: None

PATIENT
  Age: 53 Year
  Sex: Female

DRUGS (2)
  1. SELEGILINE HYDROCHLORIDE [Suspect]
     Active Substance: SELEGILINE HYDROCHLORIDE
     Indication: Product used for unknown indication
     Dosage: 5 MG
     Route: 065
  2. PHENETHYLAMINE [Suspect]
     Active Substance: PHENETHYLAMINE
     Indication: Product used for unknown indication
     Dosage: UNKNOWN (UNREGULATED AMOUNTS)
     Route: 065

REACTIONS (2)
  - Drug interaction [Unknown]
  - Subarachnoid haemorrhage [Unknown]
